FAERS Safety Report 5973586-3 (Version None)
Quarter: 2008Q4

REPORT INFORMATION
  Report Type: 
  Country: None (occurrence: None)
  Receive Date: 20081201
  Receipt Date: 20080118
  Transmission Date: 20090506
  Serious: No
  Sender: FDA-Public Use
  Company Number: US-AMGEN-KDL261292

PATIENT
  Sex: Female
  Weight: 104.9 kg

DRUGS (14)
  1. ENBREL [Suspect]
     Indication: RHEUMATOID ARTHRITIS
     Route: 058
     Dates: start: 20071207
  2. ZITHROMAX [Suspect]
  3. METHOTREXATE [Concomitant]
     Route: 058
  4. PLAQUENIL [Concomitant]
  5. FOLIC ACID [Concomitant]
  6. ZESTRIL [Concomitant]
  7. TAGAMET [Concomitant]
  8. LIPITOR [Concomitant]
  9. SYNTHROID [Concomitant]
  10. ALLEGRA [Concomitant]
  11. TYLENOL (CAPLET) [Concomitant]
  12. CALCIUM [Concomitant]
  13. PREDNISONE TAB [Concomitant]
  14. ATIVAN [Concomitant]

REACTIONS (5)
  - DRUG INEFFECTIVE [None]
  - INJECTION SITE ERYTHEMA [None]
  - INJECTION SITE PRURITUS [None]
  - INJECTION SITE REACTION [None]
  - UPPER RESPIRATORY TRACT INFECTION [None]
